FAERS Safety Report 8336589-X (Version None)
Quarter: 2012Q2

REPORT INFORMATION
  Report Type: 
  Country: None (occurrence: None)
  Receive Date: 20120504
  Receipt Date: 20120502
  Transmission Date: 20120825
  Serious: Yes (Other)
  Sender: FDA-Public Use
  Company Number: GB-ASTELLAS-2012EU003224

PATIENT
  Age: 32 Year
  Sex: Female
  Weight: 65 kg

DRUGS (2)
  1. FLUCLOXACILLIN [Concomitant]
     Indication: ECZEMA
     Dosage: 500 MG, QID
     Route: 048
     Dates: start: 20120202, end: 20120209
  2. PROTOPIC [Suspect]
     Indication: ECZEMA
     Dosage: 1 DF, BID
     Route: 061
     Dates: start: 20120215

REACTIONS (3)
  - PRURITUS [None]
  - CONDITION AGGRAVATED [None]
  - BURNING SENSATION [None]
